FAERS Safety Report 6278190-8 (Version None)
Quarter: 2009Q3

REPORT INFORMATION
  Report Type: 
  Country: None (occurrence: None)
  Receive Date: 20090722
  Receipt Date: 20090710
  Transmission Date: 20100115
  Serious: Yes (Other)
  Sender: FDA-Public Use
  Company Number: US-PFIZER INC-2009235977

PATIENT
  Sex: Female
  Weight: 113.38 kg

DRUGS (10)
  1. ZOLOFT [Suspect]
     Indication: POSTPARTUM DEPRESSION
     Dosage: 200 MG, 1X/DAY
     Route: 048
     Dates: start: 20090201
  2. CHANTIX [Suspect]
     Indication: SMOKING CESSATION THERAPY
     Dosage: 0.5 MG, 2X/DAY
     Route: 048
     Dates: start: 20090702, end: 20090707
  3. CHANTIX [Suspect]
     Route: 048
     Dates: start: 20090702
  4. ABILIFY [Concomitant]
     Dosage: UNK
  5. KLONOPIN [Concomitant]
     Dosage: 0.5 MG, 3X/DAY
  6. LAMICTAL [Concomitant]
     Dosage: 50 MG, UNK
  7. BACTRIM [Concomitant]
     Dosage: UNK
  8. KEFLEX [Concomitant]
     Dosage: UNK
  9. CLONAZEPAM [Concomitant]
  10. DOXYCYCLINE [Suspect]
     Dosage: UNK

REACTIONS (2)
  - FEELING ABNORMAL [None]
  - MANIA [None]
